FAERS Safety Report 6292571-8 (Version None)
Quarter: 2009Q3

REPORT INFORMATION
  Report Type: 
  Country: None (occurrence: None)
  Receive Date: 20090731
  Receipt Date: 20090721
  Transmission Date: 20100115
  Serious: Yes (Life-Threatening, Hospitalization)
  Sender: FDA-Public Use
  Company Number: US-ABBOTT-09P-163-0586584-00

PATIENT
  Age: 42 Year
  Sex: Male
  Weight: 63.106 kg

DRUGS (34)
  1. RITONAVIR SOFT GELATIN CAPSULES [Suspect]
     Indication: HIV INFECTION
     Route: 048
     Dates: start: 20050718, end: 20060616
  2. RITONAVIR SOFT GELATIN CAPSULES [Suspect]
     Route: 048
     Dates: start: 20060617, end: 20070214
  3. RITONAVIR SOFT GELATIN CAPSULES [Suspect]
     Route: 048
     Dates: start: 20070215
  4. SAQUINAVIR [Suspect]
     Indication: HIV INFECTION
     Dosage: 200MG X 5 BID
     Route: 048
     Dates: start: 20050718, end: 20060716
  5. LAMIVUDINE + ZIDOVUDINE [Suspect]
     Indication: HIV INFECTION
     Route: 048
     Dates: start: 20050718, end: 20080219
  6. TENOFOVIR DISOPROXIL FUMARATE [Suspect]
     Indication: HIV INFECTION
     Route: 048
     Dates: start: 20050718, end: 20060616
  7. ATAZANAVIR SULFATE [Suspect]
     Indication: HIV INFECTION
     Route: 048
     Dates: start: 20050718, end: 20060616
  8. ATAZANAVIR SULFATE [Suspect]
     Route: 048
     Dates: start: 20060617, end: 20060716
  9. DARUNAVIR [Suspect]
     Indication: HIV INFECTION
     Dosage: 300MG X 2 BID
     Route: 048
     Dates: start: 20060717
  10. EMTRICITABINE W/TENOFOVIR DISOPROXIL FUMARATE [Suspect]
     Indication: HIV INFECTION
     Route: 048
     Dates: start: 20080220
  11. MK-0518 (BLINDED) [Suspect]
     Indication: HIV INFECTION
     Dosage: OR PLACEBO TABLET, BID
     Route: 048
     Dates: start: 20050718, end: 20060531
  12. MK-0518 (BLINDED) [Suspect]
     Route: 048
     Dates: start: 20060531
  13. MK-0518 (BLINDED) [Suspect]
     Route: 048
     Dates: start: 20050718, end: 20060716
  14. MK-0518 (BLINDED) [Suspect]
     Route: 048
     Dates: start: 20050718, end: 20060616
  15. MK-0518 (BLINDED) [Suspect]
     Route: 048
     Dates: start: 20060617, end: 20070214
  16. MK-0518 (BLINDED) [Suspect]
     Route: 048
     Dates: start: 20070215
  17. MK-0518 (BLINDED) [Suspect]
     Route: 048
     Dates: start: 20050718, end: 20080219
  18. MK-0518 (BLINDED) [Suspect]
     Route: 048
     Dates: start: 20050719, end: 20080219
  19. MK-0518 (BLINDED) [Suspect]
     Route: 048
     Dates: start: 20050618, end: 20060616
  20. MK-0518 (BLINDED) [Suspect]
     Route: 048
     Dates: start: 20060617, end: 20060716
  21. MK-0518 (BLINDED) [Suspect]
     Route: 048
     Dates: start: 20060717
  22. MK-0518 (BLINDED) [Suspect]
     Route: 048
     Dates: start: 20080220
  23. ALBUTEROL [Concomitant]
     Indication: DRUG USE FOR UNKNOWN INDICATION
     Dates: start: 20000701
  24. FLUTICASONE PROPIONATE W/SALMETEROL [Concomitant]
     Indication: DRUG USE FOR UNKNOWN INDICATION
     Dosage: XI
     Dates: start: 20000701
  25. IMIQUIMOD [Concomitant]
     Indication: DRUG USE FOR UNKNOWN INDICATION
     Dates: start: 20040701
  26. KETOCONAZOLE [Concomitant]
     Indication: DRUG USE FOR UNKNOWN INDICATION
     Dates: start: 20040701
  27. LISINOPRIL [Concomitant]
     Indication: DRUG USE FOR UNKNOWN INDICATION
     Dates: start: 20040701
  28. LOPERAMIDE HCL [Concomitant]
     Indication: DRUG USE FOR UNKNOWN INDICATION
     Dates: start: 20010701
  29. MOMETASONE FUROATE [Concomitant]
     Indication: DRUG USE FOR UNKNOWN INDICATION
     Dates: start: 20000701
  30. NAPROXEN [Concomitant]
     Indication: DRUG USE FOR UNKNOWN INDICATION
     Dates: start: 20060914
  31. SILDENAFIL CITRATE [Concomitant]
     Indication: DRUG USE FOR UNKNOWN INDICATION
     Dates: start: 20030701
  32. SULFAMETHOXAZOLE AND TRIMETHOPRIM [Concomitant]
     Indication: DRUG USE FOR UNKNOWN INDICATION
     Dates: start: 20020327
  33. TESTOSTERONE [Concomitant]
     Indication: DRUG USE FOR UNKNOWN INDICATION
     Dates: start: 20000701
  34. ZOLPIDEM TARTRATE [Concomitant]
     Indication: DRUG USE FOR UNKNOWN INDICATION
     Dates: start: 20040701

REACTIONS (2)
  - CYTOMEGALOVIRUS COLITIS [None]
  - OSTEOMYELITIS [None]
